FAERS Safety Report 4776150-7 (Version None)
Quarter: 2005Q3

REPORT INFORMATION
  Report Type: 
  Country: None (occurrence: None)
  Receive Date: 20050914
  Receipt Date: 20050216
  Transmission Date: 20060218
  Serious: Yes (Death, Hospitalization)
  Sender: FDA-Public Use
  Company Number: 163-20785-05020315

PATIENT
  Age: 73 Year
  Sex: Female

DRUGS (1)
  1. THALOMID [Suspect]
     Indication: LEPROSY
     Dosage: 50 MG, QHS, ORAL
     Route: 048
     Dates: start: 19980301, end: 20040401

REACTIONS (6)
  - DEATH [None]
  - FATIGUE [None]
  - GALLBLADDER PERFORATION [None]
  - RIB FRACTURE [None]
  - ROAD TRAFFIC ACCIDENT [None]
  - SEPSIS [None]
